FAERS Safety Report 10017652 (Version 1)
Quarter: 2014Q1

REPORT INFORMATION
  Report Type: Spontaneous
  Country: US (occurrence: US)
  Receive Date: 20140318
  Receipt Date: 20140318
  Transmission Date: 20141002
  Serious: No
  Sender: FDA-Public Use
  Company Number: US-BAYER-2014-032268

PATIENT
  Age: 43 Year
  Sex: Male
  Weight: 115 kg

DRUGS (4)
  1. ALEVE TABLET [Suspect]
     Indication: INFLAMMATION
     Dosage: 2 DF, UNK
     Route: 048
     Dates: start: 20140222, end: 20140223
  2. ALEVE TABLET [Suspect]
     Indication: SWELLING
     Dosage: UNK DF, PRN, 1 EVERY 8 HOURS
     Route: 048
  3. ALEVE TABLET [Suspect]
     Indication: PAIN
  4. ALEVE TABLET [Suspect]
     Indication: HYPOAESTHESIA

REACTIONS (3)
  - Drug ineffective [None]
  - Intentional drug misuse [None]
  - Extra dose administered [None]
